FAERS Safety Report 4309890-4 (Version None)
Quarter: 2004Q1

REPORT INFORMATION
  Report Type: 
  Country: None (occurrence: None)
  Receive Date: 20040303
  Receipt Date: 20040115
  Transmission Date: 20041129
  Serious: No
  Sender: FDA-Public Use
  Company Number: US-BRISTOL-MYERS SQUIBB COMPANY-12479705

PATIENT
  Age: 37 Year
  Sex: Female

DRUGS (7)
  1. ABILIFY [Suspect]
     Indication: AGITATION
     Dosage: DOSE INCREASED ^SOME DAYS 5 MG DAILY^
     Route: 048
     Dates: start: 20031201
  2. ABILIFY [Suspect]
     Indication: INSOMNIA
     Dosage: DOSE INCREASED ^SOME DAYS 5 MG DAILY^
     Route: 048
     Dates: start: 20031201
  3. LORAZEPAM [Concomitant]
  4. WELLBUTRIN [Concomitant]
  5. LEVOXYL [Concomitant]
  6. ZANTAC [Concomitant]
  7. OXYCODONE HCL [Concomitant]

REACTIONS (1)
  - DYSPHAGIA [None]
